FAERS Safety Report 16281485 (Version 1)
Quarter: 2019Q2

REPORT INFORMATION
  Report Type: Spontaneous
  Country: US (occurrence: US)
  Receive Date: 20190507
  Receipt Date: 20190507
  Transmission Date: 20190711
  Serious: No
  Sender: FDA-Public Use
  Company Number: US-PFIZER INC-2019187166

PATIENT
  Age: 88 Year
  Sex: Female

DRUGS (4)
  1. TERFENADINE [Suspect]
     Active Substance: TERFENADINE
     Dosage: UNK
  2. CELECOXIB. [Suspect]
     Active Substance: CELECOXIB
     Dosage: UNK
  3. LIPITOR [Suspect]
     Active Substance: ATORVASTATIN CALCIUM
     Dosage: UNK
  4. SELDANE [Suspect]
     Active Substance: TERFENADINE
     Dosage: UNK

REACTIONS (1)
  - Drug hypersensitivity [Unknown]
